FAERS Safety Report 10254897 (Version 1)
Quarter: 2014Q2

REPORT INFORMATION
  Report Type: Report from Study
  Country: US (occurrence: US)
  Receive Date: 20140624
  Receipt Date: 20140624
  Transmission Date: 20141212
  Serious: Yes (Hospitalization)
  Sender: FDA-Public Use
  Company Number: PHEH2014US012497

PATIENT
  Sex: Male

DRUGS (1)
  1. TOBI [Suspect]
     Indication: CHRONIC RESPIRATORY FAILURE
     Dosage: 300MG/5ML BID
     Route: 055

REACTIONS (2)
  - Tracheitis [Unknown]
  - Lung disorder [Unknown]
